FAERS Safety Report 7814893-9 (Version None)
Quarter: 2011Q4

REPORT INFORMATION
  Report Type: 
  Country: None (occurrence: None)
  Receive Date: 20111014
  Receipt Date: 20111012
  Transmission Date: 20120403
  Serious: No
  Sender: FDA-Public Use
  Company Number: US-B.I. PHARMACEUTICALS,INC./RIDGEFIELD-2011-BP-24113BP

PATIENT
  Sex: Female

DRUGS (5)
  1. PRADAXA [Suspect]
     Indication: ATRIAL FIBRILLATION
     Dosage: 300 MG
     Route: 048
     Dates: start: 20110617
  2. PROZAC [Concomitant]
     Indication: DEPRESSION
  3. ZOCOR [Concomitant]
     Indication: BLOOD CHOLESTEROL INCREASED
  4. FENTANYL-100 [Concomitant]
     Indication: INTERVERTEBRAL DISC DEGENERATION
  5. DIOVAN [Concomitant]
     Indication: HYPERTENSION

REACTIONS (3)
  - THROAT IRRITATION [None]
  - OESOPHAGITIS [None]
  - DYSPEPSIA [None]
